FAERS Safety Report 7432880-X (Version None)
Quarter: 2011Q2

REPORT INFORMATION
  Report Type: 
  Country: None (occurrence: None)
  Receive Date: 20110422
  Receipt Date: 20110413
  Transmission Date: 20111010
  Serious: Yes (Disabling, Other)
  Sender: FDA-Public Use
  Company Number: US-ASTRAZENECA-2011SE21693

PATIENT
  Age: 32 Year
  Sex: Male

DRUGS (2)
  1. SEROQUEL [Suspect]
     Indication: MOOD ALTERED
     Dosage: TOTAL DAILY DOSAGE: 50 MG, FREQUENCY: UNKNOWN.
     Route: 048
  2. SEROQUEL [Suspect]
     Dosage: TOTAL DAILY DOSAGE: 100 MG, FREQUENCY: UNKNOWN.
     Route: 048

REACTIONS (2)
  - PARALYSIS [None]
  - TRAUMATIC BRAIN INJURY [None]
